FAERS Safety Report 6998562-3 (Version None)
Quarter: 2010Q3

REPORT INFORMATION
  Report Type: 
  Country: None (occurrence: None)
  Receive Date: 20100920
  Receipt Date: 20100112
  Transmission Date: 20110219
  Serious: No
  Sender: FDA-Public Use
  Company Number: US-ASTRAZENECA-2010SE01428

PATIENT
  Sex: Female

DRUGS (3)
  1. SEROQUEL [Suspect]
     Indication: BIPOLAR I DISORDER
     Route: 048
     Dates: start: 19980101
  2. DEPAKOTE [Concomitant]
     Indication: BIPOLAR I DISORDER
     Dates: start: 19980101
  3. NEURONTIN [Concomitant]
     Indication: BIPOLAR I DISORDER
     Dates: start: 19980101

REACTIONS (4)
  - DRUG INEFFECTIVE [None]
  - LIMB INJURY [None]
  - MANIA [None]
  - PERIPHERAL NERVE INJURY [None]
